FAERS Safety Report 10472795 (Version 2)
Quarter: 2014Q3

REPORT INFORMATION
  Report Type: Report from Study
  Country: CA (occurrence: CA)
  Receive Date: 20140924
  Receipt Date: 20140924
  Transmission Date: 20150326
  Serious: Yes (Life-Threatening, Hospitalization, Disabling, Other)
  Sender: FDA-Public Use
  Company Number: CA-ABBVIE-14K-028-1284275-00

PATIENT
  Age: 55 Year
  Sex: Male
  Weight: 110.78 kg

DRUGS (5)
  1. AMLODIPINE [Concomitant]
     Active Substance: AMLODIPINE BESYLATE
     Indication: HYPERTENSION
     Route: 048
  2. PREDNISONE. [Concomitant]
     Active Substance: PREDNISONE
     Indication: IRRITABLE BOWEL SYNDROME
     Dosage: NUMEROUS COURSES
     Dates: start: 1995
  3. IMURAN [Concomitant]
     Active Substance: AZATHIOPRINE
     Indication: PRODUCT USED FOR UNKNOWN INDICATION
     Dates: start: 2010, end: 201403
  4. HUMIRA [Suspect]
     Active Substance: ADALIMUMAB
     Indication: CROHN^S DISEASE
     Route: 058
     Dates: start: 20100514, end: 201403
  5. PENTASA [Concomitant]
     Active Substance: MESALAMINE
     Indication: CROHN^S DISEASE
     Dosage: 1-2 (GRAMS)
     Route: 048
     Dates: start: 199503, end: 2011

REACTIONS (6)
  - Bone scan abnormal [Unknown]
  - Osteolysis [Unknown]
  - Plasmacytoma [Unknown]
  - Back pain [Unknown]
  - Proctalgia [Unknown]
  - Plasma cell myeloma [Unknown]

NARRATIVE: CASE EVENT DATE: 201401
